FAERS Safety Report 8010004-8 (Version None)
Quarter: 2011Q4

REPORT INFORMATION
  Report Type: 
  Country: None (occurrence: None)
  Receive Date: 20111228
  Receipt Date: 20111214
  Transmission Date: 20120403
  Serious: Yes (Hospitalization, Other)
  Sender: FDA-Public Use
  Company Number: US-ELI_LILLY_AND_COMPANY-US201004002927

PATIENT
  Sex: Female

DRUGS (24)
  1. FORTEO [Suspect]
     Dosage: 20 UG, QD
  2. SUCRALFATE [Concomitant]
     Dosage: 1 MG, EVERY 6 HRS
  3. ALBUTEROL [Concomitant]
     Indication: RESPIRATORY DISORDER
     Dosage: UNK, 2 OR 3 TIMES DAILY
  4. MUCINEX [Concomitant]
  5. FORTEO [Suspect]
     Dosage: 20 UG, QD
  6. FERROUS                            /00023505/ [Concomitant]
  7. ZYFLO [Concomitant]
     Dosage: 2 DF, BID
  8. FUROSEMIDE [Concomitant]
  9. QVAR 40 [Concomitant]
     Dosage: 2 DF, BID
  10. ADVAIR DISKUS 100/50 [Concomitant]
     Dosage: 1 DF, BID
  11. SPIRIVA [Concomitant]
     Dosage: UNK, QD
  12. FORTEO [Suspect]
     Dosage: 20 UG, QD
  13. FORTEO [Suspect]
     Dosage: 20 UG, QD
     Route: 065
  14. KLOR-CON [Concomitant]
  15. PANTOPRAZOLE [Concomitant]
  16. FORTEO [Suspect]
     Dosage: 20 UG, QD
  17. PREDNISONE TAB [Concomitant]
     Dosage: 10 MG, QD
  18. PANTOPRAZOLE [Concomitant]
     Indication: BARRETT'S OESOPHAGUS
     Dosage: UNK, BID
  19. BISOPROLOL FUMARATE [Concomitant]
     Dosage: 5 MG, QD
  20. PROVENTIL /00139501/ [Concomitant]
  21. FORTEO [Suspect]
     Indication: OSTEOPOROSIS
     Dosage: 20 UG, QD
     Route: 065
     Dates: start: 20100401
  22. REQUIP [Concomitant]
  23. FOSAMAX [Concomitant]
  24. METFORMIN HCL [Concomitant]

REACTIONS (21)
  - RALES [None]
  - DIARRHOEA [None]
  - NAUSEA [None]
  - OEDEMA PERIPHERAL [None]
  - BONE DENSITY ABNORMAL [None]
  - MUSCLE SPASMS [None]
  - INJECTION SITE HAEMATOMA [None]
  - FOOT FRACTURE [None]
  - PNEUMONIA [None]
  - TOTAL LUNG CAPACITY DECREASED [None]
  - ASTHENIA [None]
  - COUGH [None]
  - HOSPITALISATION [None]
  - FEELING ABNORMAL [None]
  - INJECTION SITE PAIN [None]
  - DYSPNOEA [None]
  - UPPER RESPIRATORY TRACT INFECTION [None]
  - BACK PAIN [None]
  - RESPIRATORY DISORDER [None]
  - RASH [None]
  - BONE DISORDER [None]
